FAERS Safety Report 8769730 (Version 1)
Quarter: 2012Q4

REPORT INFORMATION
  Report Type: 
  Country: US (occurrence: US)
  Receive Date: 20120905
  Receipt Date: 20120905
  Transmission Date: 20130627
  Serious: Yes (Other)
  Sender: FDA-Public Use
  Company Number: US-JNJFOC-20120814849

PATIENT
  Age: 16 Year
  Sex: Female

DRUGS (2)
  1. TRINESSA [Suspect]
     Indication: CONTRACEPTION
     Route: 065
     Dates: start: 20120820, end: 20120822
  2. ETHINYL ESTRADIOL/NORGESTIMATE [Suspect]
     Indication: CONTRACEPTION
     Route: 065
     Dates: start: 20120619, end: 20120819

REACTIONS (2)
  - Amnesia [Recovering/Resolving]
  - Anxiety [Recovered/Resolved]
